FAERS Safety Report 16972649 (Version 1)
Quarter: 2019Q4

REPORT INFORMATION
  Report Type: Spontaneous
  Country: CZ (occurrence: CZ)
  Receive Date: 20191030
  Receipt Date: 20191030
  Transmission Date: 20200122
  Serious: Yes (Hospitalization)
  Sender: FDA-Public Use
  Company Number: CZ-AUROBINDO-AUR-APL-2019-069428

PATIENT
  Age: 3 Month
  Sex: Male

DRUGS (5)
  1. HYDROCORTISON [Suspect]
     Active Substance: HYDROCORTISONE
     Indication: RASH
     Dosage: UNK
     Route: 061
  2. CLOTRIMAZOLE. [Suspect]
     Active Substance: CLOTRIMAZOLE
     Indication: RASH
     Dosage: UNK
     Route: 061
  3. FUSIDIC ACID [Suspect]
     Active Substance: FUSIDIC ACID
     Indication: RASH
     Dosage: UNK
     Route: 061
  4. FLUCONAZOLE. [Suspect]
     Active Substance: FLUCONAZOLE
     Indication: DISEASE PROGRESSION
     Dosage: UNK
     Route: 065
  5. OXACILLIN [Suspect]
     Active Substance: OXACILLIN SODIUM
     Indication: DISEASE PROGRESSION
     Dosage: UNK
     Route: 065

REACTIONS (1)
  - Therapy non-responder [Recovered/Resolved]
